FAERS Safety Report 18108956 (Version 3)
Quarter: 2021Q1

REPORT INFORMATION
  Report Type: Spontaneous
  Country: US (occurrence: US)
  Receive Date: 20200804
  Receipt Date: 20210111
  Transmission Date: 20210419
  Serious: Yes (Other)
  Sender: FDA-Public Use
  Company Number: US-PFIZER INC-2020291492

PATIENT
  Age: 58 Year
  Sex: Female

DRUGS (3)
  1. ADVIL [Concomitant]
     Active Substance: IBUPROFEN
     Dosage: UNK
  2. SULFUR. [Concomitant]
     Active Substance: SULFUR
     Indication: RHEUMATOID ARTHRITIS
     Dosage: UNK
  3. XELJANZ XR [Suspect]
     Active Substance: TOFACITINIB CITRATE
     Indication: RHEUMATOID ARTHRITIS
     Dosage: 11 MG, 1X/DAY
     Route: 048
     Dates: start: 202001

REACTIONS (10)
  - Blood cholesterol increased [Unknown]
  - Hypertension [Unknown]
  - Arthralgia [Unknown]
  - Lymphadenopathy [Recovering/Resolving]
  - Pyrexia [Unknown]
  - Diarrhoea [Recovered/Resolved]
  - Urinary tract infection [Unknown]
  - Product dose omission issue [Unknown]
  - Lip blister [Not Recovered/Not Resolved]
  - Fatigue [Unknown]

NARRATIVE: CASE EVENT DATE: 2020
